FAERS Safety Report 6994533-1 (Version None)
Quarter: 2010Q3

REPORT INFORMATION
  Report Type: 
  Country: None (occurrence: None)
  Receive Date: 20100917
  Receipt Date: 20100913
  Transmission Date: 20110219
  Serious: Yes (Death)
  Sender: FDA-Public Use
  Company Number: US-GILEAD-2010-0031708

PATIENT
  Sex: Female
  Weight: 62.652 kg

DRUGS (16)
  1. LETAIRIS [Suspect]
     Indication: PULMONARY ARTERIAL HYPERTENSION
     Route: 048
     Dates: start: 20070825
  2. LETAIRIS [Suspect]
     Dates: start: 20030101
  3. PEPCID [Concomitant]
  4. PREDNISONE [Concomitant]
  5. BENADRYL [Concomitant]
  6. REYATAZ [Concomitant]
  7. LASIX [Concomitant]
  8. TRICOR [Concomitant]
  9. NORVIR [Concomitant]
  10. GLUCOPHAGE [Concomitant]
  11. BENAZEPRIL HYDROCHLORIDE [Concomitant]
  12. EPZICOM [Concomitant]
  13. KLOR-CON [Concomitant]
  14. MULTI-VITAMIN [Concomitant]
  15. ACTOS [Concomitant]
  16. VIREAD [Concomitant]

REACTIONS (2)
  - HIV INFECTION [None]
  - SEPSIS [None]
